FAERS Safety Report 7563492-5 (Version None)
Quarter: 2011Q2

REPORT INFORMATION
  Report Type: 
  Country: None (occurrence: None)
  Receive Date: 20110622
  Receipt Date: 20110615
  Transmission Date: 20111010
  Serious: Yes (Life-Threatening)
  Sender: FDA-Public Use
  Company Number: DO-ABBOTT-11P-CLI-0732719-00

PATIENT
  Sex: Male
  Weight: 68.1 kg

DRUGS (2)
  1. RIBOTIL [Concomitant]
     Indication: PRODUCT USED FOR UNKNOWN INDICATION
  2. VALPROATE SODIUM [Suspect]
     Indication: PRODUCT USED FOR UNKNOWN INDICATION
     Dosage: 500 + 250MG

REACTIONS (3)
  - OVERDOSE [None]
  - URINARY INCONTINENCE [None]
  - CONVULSION [None]
